FAERS Safety Report 4987693-5 (Version None)
Quarter: 2006Q2

REPORT INFORMATION
  Report Type: 
  Country: None (occurrence: None)
  Receive Date: 20060424
  Receipt Date: 20060403
  Transmission Date: 20061013
  Serious: Yes (Other)
  Sender: FDA-Public Use
  Company Number: US200604000505

PATIENT
  Age: 8 Year
  Sex: Male
  Weight: 43.5 kg

DRUGS (1)
  1. STRATTERA [Suspect]
     Dosage: 25 MG, DAILY (1/D), ORAL
     Route: 048
     Dates: start: 20050301

REACTIONS (5)
  - ANAL FISTULA [None]
  - ANORECTAL DISORDER [None]
  - CONSTIPATION [None]
  - HAEMATOCHEZIA [None]
  - PROCTALGIA [None]
